FAERS Safety Report 5196986-0 (Version None)
Quarter: 2006Q4

REPORT INFORMATION
  Report Type: 
  Country: None (occurrence: None)
  Receive Date: 20061227
  Receipt Date: 20061215
  Transmission Date: 20070319
  Serious: Yes (Other)
  Sender: FDA-Public Use
  Company Number: 2006154089

PATIENT
  Age: 41 Year
  Sex: Female

DRUGS (2)
  1. LYRICA [Suspect]
     Indication: MUSCULOSKELETAL PAIN
     Dosage: 75 MG, ORAL
     Route: 048
  2. LYRICA [Suspect]
     Indication: NECK PAIN
     Dosage: 75 MG, ORAL
     Route: 048

REACTIONS (1)
  - SCOTOMA [None]
